FAERS Safety Report 19933759 (Version 2)
Quarter: 2021Q4

REPORT INFORMATION
  Report Type: Spontaneous
  Country: US (occurrence: US)
  Receive Date: 20211008
  Receipt Date: 20211026
  Transmission Date: 20220304
  Serious: Yes (Hospitalization, Disabling)
  Sender: FDA-Public Use
  Company Number: US-INTRA-CELLULAR THERAPIES, INC.-2021ICT00376

PATIENT
  Age: 37 Year
  Sex: Male

DRUGS (7)
  1. CAPLYTA [Suspect]
     Active Substance: LUMATEPERONE
     Indication: Schizophrenia
     Dosage: 42 MG, 1X/DAY
     Dates: start: 20210629, end: 20210820
  2. CAPLYTA [Suspect]
     Active Substance: LUMATEPERONE
     Dosage: 42 MG, EVERY 48 HOURS
     Dates: start: 20210821, end: 20210830
  3. SEROQUEL [Suspect]
     Active Substance: QUETIAPINE FUMARATE
     Dosage: UNK
     Dates: start: 20210908, end: 20210922
  4. ABILIFY [Suspect]
     Active Substance: ARIPIPRAZOLE
     Indication: Schizophrenia
     Dosage: 10 MG, UNKNOWN
     Dates: end: 202106
  5. ABILIFY [Suspect]
     Active Substance: ARIPIPRAZOLE
     Dosage: 5 MG, UNKNOWN
     Dates: start: 202107, end: 202107
  6. CYMBALTA [Concomitant]
     Active Substance: DULOXETINE HYDROCHLORIDE
     Dosage: UNK MG
  7. METFORMIN [Concomitant]
     Active Substance: METFORMIN HYDROCHLORIDE

REACTIONS (15)
  - Abnormal behaviour [Not Recovered/Not Resolved]
  - Confusional state [Not Recovered/Not Resolved]
  - Impaired self-care [Not Recovered/Not Resolved]
  - Soliloquy [Not Recovered/Not Resolved]
  - Nervousness [Not Recovered/Not Resolved]
  - Tobacco abuse [Unknown]
  - Asocial behaviour [Not Recovered/Not Resolved]
  - Memory impairment [Not Recovered/Not Resolved]
  - Dyskinesia [Recovering/Resolving]
  - Restlessness [Not Recovered/Not Resolved]
  - Hyperhidrosis [Recovering/Resolving]
  - Tic [Recovering/Resolving]
  - Intentional underdose [Recovered/Resolved]
  - Sleep apnoea syndrome [Unknown]
  - Weight increased [Unknown]

NARRATIVE: CASE EVENT DATE: 20210101
